FAERS Safety Report 8098708-2 (Version None)
Quarter: 2012Q1

REPORT INFORMATION
  Report Type: 
  Country: None (occurrence: None)
  Receive Date: 20120131
  Receipt Date: 20120123
  Transmission Date: 20120608
  Serious: Yes (Other)
  Sender: FDA-Public Use
  Company Number: CHPA2012US001947

PATIENT
  Sex: Female

DRUGS (1)
  1. EXCEDRIN (MIGRAINE) [Suspect]
     Dosage: UNK DF, UNK

REACTIONS (2)
  - DRUG DEPENDENCE [None]
  - LIVER DISORDER [None]
